FAERS Safety Report 7062477-5 (Version None)
Quarter: 2010Q4

REPORT INFORMATION
  Report Type: 
  Country: None (occurrence: None)
  Receive Date: 20101026
  Receipt Date: 20091031
  Transmission Date: 20110411
  Serious: No
  Sender: FDA-Public Use
  Company Number: US-PFIZER INC-2009293197

PATIENT
  Sex: Female
  Weight: 58.05 kg

DRUGS (2)
  1. LIPITOR [Suspect]
     Indication: BLOOD CHOLESTEROL INCREASED
     Dosage: UNK
  2. FOSAMAX [Concomitant]
     Dosage: UNK

REACTIONS (2)
  - ARTHRITIS [None]
  - HYPERTENSION [None]
